FAERS Safety Report 9937321 (Version 1)
Quarter: 2014Q1

REPORT INFORMATION
  Report Type: Report from Study
  Country: GR (occurrence: GR)
  Receive Date: 20140302
  Receipt Date: 20140302
  Transmission Date: 20141002
  Serious: Yes (Hospitalization)
  Sender: FDA-Public Use
  Company Number: GR-US-EMD SERONO, INC.-7271972

PATIENT
  Age: 44 Year
  Sex: Male
  Weight: 85 kg

DRUGS (1)
  1. REBIF [Suspect]
     Indication: MULTIPLE SCLEROSIS
     Route: 058
     Dates: start: 200602

REACTIONS (4)
  - Iliac artery occlusion [Recovered/Resolved]
  - Umbilical hernia [Recovered/Resolved]
  - Haematuria [Recovering/Resolving]
  - Depressed mood [Recovering/Resolving]
